FAERS Safety Report 11132822 (Version 1)
Quarter: 2015Q2

REPORT INFORMATION
  Report Type: Spontaneous
  Country: US (occurrence: None)
  Receive Date: 20150521
  Receipt Date: 20150521
  Transmission Date: 20150821
  Serious: No
  Sender: FDA-Public Use
  Company Number: None

PATIENT
  Age: 23 Year
  Sex: Female
  Weight: 61.24 kg

DRUGS (22)
  1. LOPROX [Concomitant]
     Active Substance: CICLOPIROX\CICLOPIROX OLAMINE
  2. XULANE [Suspect]
     Active Substance: ETHINYL ESTRADIOL\NORELGESTROMIN
     Indication: ANXIETY
     Dosage: 3 MONTHS, PAUSE, 1 MONTH, ONE TRANSDERMAL PATCH, QW FOR 12 WEEKS, APPLIED AS MEDICATED PATCH TO SKIN
     Route: 062
  3. PROTOPIC [Concomitant]
     Active Substance: TACROLIMUS
  4. ICOOL [Concomitant]
  5. IBUPROFEN. [Concomitant]
     Active Substance: IBUPROFEN
  6. RANITIDINE [Concomitant]
     Active Substance: RANITIDINE\RANITIDINE HYDROCHLORIDE
  7. NEURONTIN [Concomitant]
     Active Substance: GABAPENTIN
  8. DULCOLAX [Concomitant]
     Active Substance: BISACODYL OR DOCUSATE SODIUM
  9. REMICADE [Concomitant]
     Active Substance: INFLIXIMAB
  10. PROTONIX [Concomitant]
     Active Substance: PANTOPRAZOLE SODIUM
  11. PREP. H LINE. [Concomitant]
  12. XULANE [Suspect]
     Active Substance: ETHINYL ESTRADIOL\NORELGESTROMIN
     Indication: MENSTRUATION IRREGULAR
     Dosage: 3 MONTHS, PAUSE, 1 MONTH, ONE TRANSDERMAL PATCH, QW FOR 12 WEEKS, APPLIED AS MEDICATED PATCH TO SKIN
     Route: 062
  13. CALCIUM + VIT D [Concomitant]
  14. ACETAMINOPHEN. [Concomitant]
     Active Substance: ACETAMINOPHEN
  15. OXYBUTYNIN CL ER [Concomitant]
     Active Substance: OXYBUTYNIN CHLORIDE
  16. IRON [Concomitant]
     Active Substance: IRON
  17. MULTIVITAMIN [Concomitant]
     Active Substance: VITAMINS
  18. NAPROXEN. [Concomitant]
     Active Substance: NAPROXEN
  19. MIRALAX [Concomitant]
     Active Substance: POLYETHYLENE GLYCOL 3350
  20. ZOFRAN [Concomitant]
     Active Substance: ONDANSETRON HYDROCHLORIDE
  21. ACANYE GEL [Concomitant]
  22. EX-LAX REGULAR STRENGTH STIMULANT LAXATIVE [Concomitant]
     Active Substance: SENNOSIDES

REACTIONS (7)
  - Night sweats [None]
  - Photosensitivity reaction [None]
  - Hyperhidrosis [None]
  - Hyperaesthesia [None]
  - Product substitution issue [None]
  - Sunburn [None]
  - Pain [None]

NARRATIVE: CASE EVENT DATE: 20150519
